FAERS Safety Report 7657924-1 (Version None)
Quarter: 2011Q3

REPORT INFORMATION
  Report Type: 
  Country: None (occurrence: None)
  Receive Date: 20110805
  Receipt Date: 20091211
  Transmission Date: 20111222
  Serious: No
  Sender: FDA-Public Use
  Company Number: 2009BI041938

PATIENT
  Sex: Female

DRUGS (9)
  1. KLONOPIN [Concomitant]
     Indication: ANXIETY
  2. TYSABRI [Suspect]
     Indication: MULTIPLE SCLEROSIS
     Route: 042
     Dates: start: 20041101, end: 20050224
  3. AVONEX [Concomitant]
     Indication: MULTIPLE SCLEROSIS
     Route: 030
     Dates: start: 20091204
  4. WELLBUTRIN [Concomitant]
     Indication: DEPRESSION
  5. WELLBUTRIN [Concomitant]
     Indication: FATIGUE
  6. ZYRTEC [Concomitant]
     Indication: SEASONAL ALLERGY
  7. KLONOPIN [Concomitant]
     Indication: MUSCLE SPASMS
  8. TYSABRI [Suspect]
     Route: 042
     Dates: start: 20071024, end: 20080714
  9. BACLOFEN [Concomitant]
     Indication: MUSCLE SPASMS

REACTIONS (6)
  - NUCLEAR MAGNETIC RESONANCE IMAGING ABNORMAL [None]
  - IMPAIRED DRIVING ABILITY [None]
  - COGNITIVE DISORDER [None]
  - VISUAL IMPAIRMENT [None]
  - DRUG INEFFECTIVE [None]
  - DEPRESSED MOOD [None]
